FAERS Safety Report 13087186 (Version 2)
Quarter: 2017Q1

REPORT INFORMATION
  Report Type: Report from Study
  Country: US (occurrence: US)
  Receive Date: 20170105
  Receipt Date: 20170310
  Transmission Date: 20170428
  Serious: Yes (Death, Disabling)
  Sender: FDA-Public Use
  Company Number: US-UCBSA-2017000085

PATIENT
  Age: 56 Year
  Sex: Female

DRUGS (2)
  1. LEVETIRACETAM. [Suspect]
     Active Substance: LEVETIRACETAM
     Dosage: 750 MG, 2X/DAY (BID)
     Dates: start: 20161130, end: 20161212
  2. LEVETIRACETAM. [Suspect]
     Active Substance: LEVETIRACETAM
     Indication: EPILEPSY
     Dosage: UNK

REACTIONS (2)
  - Inappropriate schedule of drug administration [Unknown]
  - Pancreatic carcinoma [Fatal]

NARRATIVE: CASE EVENT DATE: 20161130
